FAERS Safety Report 4694057-0 (Version None)
Quarter: 2005Q2

REPORT INFORMATION
  Report Type: 
  Country: None (occurrence: None)
  Receive Date: 20050616
  Receipt Date: 20050303
  Transmission Date: 20051028
  Serious: Yes (Other)
  Sender: FDA-Public Use
  Company Number: 2005069498

PATIENT
  Age: 57 Year
  Sex: Male
  Weight: 56.6996 kg

DRUGS (5)
  1. CELEBREX [Suspect]
     Indication: ARTHRITIS
     Dosage: 200 MG (200 MG, 1 IN 1 D), ORAL
     Route: 048
     Dates: start: 20050401
  2. LENDORNATE SODIUM (ALENDORNATE SODIUM) [Concomitant]
  3. CALCIUM WITH VITAMIN D (CALCIUM PHOSPHATE, CALCIUM SODIUM LACTATE, ERG [Concomitant]
  4. CENTRUM (MINERALS NOS, VITAMINS NOS0 [Concomitant]
  5. SYNTHROID [Concomitant]

REACTIONS (3)
  - ANAPHYLACTIC REACTION [None]
  - DIARRHOEA [None]
  - PRURITUS [None]
